FAERS Safety Report 5105728-6 (Version None)
Quarter: 2006Q3

REPORT INFORMATION
  Report Type: 
  Country: None (occurrence: None)
  Receive Date: 20060915
  Receipt Date: 20060828
  Transmission Date: 20061208
  Serious: Yes (Death, Other)
  Sender: FDA-Public Use
  Company Number: US-PURDUE-USA_2006_0025101

PATIENT
  Age: 22 Year
  Sex: Male

DRUGS (2)
  1. MORPHINE SULFATE [Suspect]
     Indication: PAIN
     Dosage: UNK, SEE TEXT
  2. ALCOHOL [Suspect]
     Indication: DRUG ABUSER
     Dosage: UNK, UNK

REACTIONS (4)
  - ASPHYXIA [None]
  - CARBON MONOXIDE POISONING [None]
  - COMPLETED SUICIDE [None]
  - SUBSTANCE ABUSE [None]
